FAERS Safety Report 22322172 (Version 1)
Quarter: 2023Q2

REPORT INFORMATION
  Report Type: Spontaneous
  Country: US (occurrence: US)
  Receive Date: 20230516
  Receipt Date: 20230516
  Transmission Date: 20230722
  Serious: No
  Sender: FDA-Public Use
  Company Number: US-UCBSA-2022059020

PATIENT
  Sex: Male

DRUGS (2)
  1. NEUPRO [Suspect]
     Active Substance: ROTIGOTINE
     Indication: Restless legs syndrome
     Dosage: 2 MILLIGRAM, UNK
     Route: 062
     Dates: start: 20220928
  2. NEUPRO [Suspect]
     Active Substance: ROTIGOTINE
     Dosage: 1 MILLIGRAM, ONCE DAILY (QD)
     Route: 062

REACTIONS (5)
  - Somnolence [Unknown]
  - Sedation [Unknown]
  - Drug ineffective [Unknown]
  - Product adhesion issue [Unknown]
  - Wrong technique in product usage process [Unknown]
